FAERS Safety Report 24336126 (Version 1)
Quarter: 2024Q3

REPORT INFORMATION
  Report Type: Spontaneous
  Country: KR (occurrence: KR)
  Receive Date: 20240919
  Receipt Date: 20240919
  Transmission Date: 20241016
  Serious: No
  Sender: ROCHE
  Company Number: KR-ROCHE-3428952

PATIENT
  Sex: Female

DRUGS (1)
  1. TAMIFLU [Suspect]
     Active Substance: OSELTAMIVIR PHOSPHATE
     Indication: Influenza
     Dosage: AT 08:00 P.M. LAST NIGHT AND 08:00 A.M. THIS MORNING? FREQUENCY TEXT:TWICE
     Route: 065

REACTIONS (1)
  - Insomnia [Unknown]
